FAERS Safety Report 6635329-X (Version None)
Quarter: 2010Q1

REPORT INFORMATION
  Report Type: 
  Country: None (occurrence: None)
  Receive Date: 20100315
  Receipt Date: 20100315
  Transmission Date: 20100710
  Serious: Yes (Death, Hospitalization)
  Sender: FDA-Public Use
  Company Number: A0849590A

PATIENT
  Sex: Male

DRUGS (1)
  1. ARZERRA [Suspect]
     Route: 065
     Dates: end: 20100201

REACTIONS (4)
  - ADVERSE DRUG REACTION [None]
  - ANAEMIA [None]
  - DISEASE PROGRESSION [None]
  - THROMBOCYTOPENIA [None]
